FAERS Safety Report 12100495 (Version 1)
Quarter: 2016Q1

REPORT INFORMATION
  Report Type: Spontaneous
  Country: US (occurrence: US)
  Receive Date: 20160222
  Receipt Date: 20160222
  Transmission Date: 20160526
  Serious: No
  Sender: FDA-Public Use
  Company Number: US-JNJFOC-20160212801

PATIENT
  Sex: Female

DRUGS (3)
  1. CORTICOSTEROID NOS [Concomitant]
     Active Substance: CORTICOSTEROID NOS
  2. DARZALEX [Suspect]
     Active Substance: DARATUMUMAB
     Indication: PRODUCT USED FOR UNKNOWN INDICATION
     Dosage: RESTARTED AND HAD TO STOP AGAIN AS SYMPTOMS RE-APPEARED
     Route: 042
     Dates: start: 20160211, end: 20160211
  3. DARZALEX [Suspect]
     Active Substance: DARATUMUMAB
     Indication: PRODUCT USED FOR UNKNOWN INDICATION
     Dosage: STOPPED AFTER 1ST EPISODE
     Route: 042
     Dates: start: 20160211, end: 20160211

REACTIONS (4)
  - Cough [Unknown]
  - Infusion related reaction [Unknown]
  - Dyspnoea [Unknown]
  - Wheezing [Unknown]

NARRATIVE: CASE EVENT DATE: 20160211
